FAERS Safety Report 10242446 (Version 1)
Quarter: 2014Q2

REPORT INFORMATION
  Report Type: Spontaneous
  Country: US (occurrence: US)
  Receive Date: 20140617
  Receipt Date: 20140617
  Transmission Date: 20141212
  Serious: Yes (Other)
  Sender: FDA-Public Use
  Company Number: PHEH2014US012061

PATIENT
  Sex: 0

DRUGS (1)
  1. TEGRETOL [Suspect]
     Dosage: UNK UKN, UNK

REACTIONS (2)
  - Loss of consciousness [Unknown]
  - Migraine [Unknown]
